FAERS Safety Report 21575967 (Version 2)
Quarter: 2022Q4

REPORT INFORMATION
  Report Type: Spontaneous
  Country: BR (occurrence: BR)
  Receive Date: 20221110
  Receipt Date: 20221220
  Transmission Date: 20230113
  Serious: Yes (Other)
  Sender: FDA-Public Use
  Company Number: BR-SA-2022SA456563

PATIENT
  Age: 36 Year
  Sex: Male
  Weight: 56 kg

DRUGS (14)
  1. THYMOGLOBULINE [Suspect]
     Active Substance: LAPINE T-LYMPHOCYTE IMMUNE GLOBULIN
     Indication: Immunosuppression
     Dosage: 300 MG, QD
     Route: 042
     Dates: start: 20220709, end: 20220709
  2. HYDROCORTISONE [Concomitant]
     Active Substance: HYDROCORTISONE
     Dosage: 300 MG, QD
     Route: 042
     Dates: start: 20220709, end: 20220709
  3. CEFAZOLIN [Concomitant]
     Active Substance: CEFAZOLIN
     Dosage: 1G EVERY 8H
     Route: 042
     Dates: start: 20220709, end: 20220710
  4. DIPYRONE [Concomitant]
     Active Substance: DIPYRONE
     Dosage: 1G EVERY 6H
     Route: 042
     Dates: start: 20220709, end: 20220710
  5. TACROLIMUS [Concomitant]
     Active Substance: TACROLIMUS
     Dosage: 3 MG EVERY 12H,
     Route: 048
     Dates: start: 20220710
  6. MYCOPHENOLATE SODIUM [Concomitant]
     Active Substance: MYCOPHENOLATE SODIUM
     Dosage: 720 MG EVERY 12 HOURS
     Route: 048
     Dates: start: 20220710
  7. PREDNISONE [Concomitant]
     Active Substance: PREDNISONE
     Dosage: 5 MG, QD
     Dates: start: 20220709
  8. OMEPRAZOLE [Concomitant]
     Active Substance: OMEPRAZOLE
     Dosage: 20 MG, QD
     Route: 048
     Dates: start: 20220709
  9. BACTRIM [Concomitant]
     Active Substance: SULFAMETHOXAZOLE\TRIMETHOPRIM
     Dosage: 400/800 MG ONCE DAILY
     Route: 048
     Dates: start: 20220710
  10. AMLODIPINE [Concomitant]
     Active Substance: AMLODIPINE BESYLATE
     Dosage: 10 MG, Q12H
     Route: 048
     Dates: start: 20220710
  11. ATENOLOL [Concomitant]
     Active Substance: ATENOLOL
     Dosage: 50 MG, QD
     Route: 048
     Dates: start: 20220710
  12. CLONIDINE [Concomitant]
     Active Substance: CLONIDINE
     Dosage: 0.1 MG EVERY 8H
     Route: 048
     Dates: start: 20220710
  13. HYDRALAZINE [Concomitant]
     Active Substance: HYDRALAZINE HYDROCHLORIDE
     Dosage: 50 MG, Q8H
     Route: 048
     Dates: start: 20220710
  14. BROMOPRIDE [Concomitant]
     Active Substance: BROMOPRIDE
     Dosage: 10 MG, Q8H
     Route: 048
     Dates: start: 20220817

REACTIONS (3)
  - Transplant rejection [Unknown]
  - Delayed graft function [Unknown]
  - Drug ineffective [Unknown]

NARRATIVE: CASE EVENT DATE: 20220719
